FAERS Safety Report 17803161 (Version 1)
Quarter: 2020Q2

REPORT INFORMATION
  Report Type: Spontaneous
  Country: PR (occurrence: PR)
  Receive Date: 20200519
  Receipt Date: 20200519
  Transmission Date: 20200714
  Serious: Yes (Other)
  Sender: FDA-Public Use
  Company Number: None

PATIENT
  Age: 75 Year
  Sex: Female
  Weight: 58.05 kg

DRUGS (3)
  1. SYNTHROID [Concomitant]
     Active Substance: LEVOTHYROXINE SODIUM
  2. LOSARTAN. [Concomitant]
     Active Substance: LOSARTAN
  3. SUTENT [Suspect]
     Active Substance: SUNITINIB MALATE
     Indication: THYROID CANCER
     Route: 048
     Dates: start: 20200306

REACTIONS (8)
  - Headache [None]
  - Vomiting [None]
  - Nausea [None]
  - Fatigue [None]
  - Contusion [None]
  - Diarrhoea [None]
  - Rash [None]
  - Weight decreased [None]

NARRATIVE: CASE EVENT DATE: 20200519
